FAERS Safety Report 24085419 (Version 1)
Quarter: 2024Q3

REPORT INFORMATION
  Report Type: Report from Study
  Country: FR (occurrence: None)
  Receive Date: 20240712
  Receipt Date: 20240712
  Transmission Date: 20241017
  Serious: Yes (Other)
  Sender: ASTRAZENECA
  Company Number: 2024A011419

PATIENT
  Sex: Female
  Weight: 72 kg

DRUGS (3)
  1. IMFINZI [Suspect]
     Active Substance: DURVALUMAB
     Indication: Bile duct cancer
     Route: 042
     Dates: start: 20230810, end: 20240425
  2. GEMCITABINE [Concomitant]
     Active Substance: GEMCITABINE
     Dates: start: 20230810
  3. CISPLATIN [Concomitant]
     Active Substance: CISPLATIN
     Dates: start: 20230810

REACTIONS (2)
  - Device related thrombosis [Recovered/Resolved]
  - Off label use [Unknown]
